FAERS Safety Report 9293325 (Version 3)
Quarter: 2013Q3

REPORT INFORMATION
  Report Type: Spontaneous
  Country: IT (occurrence: IT)
  Receive Date: 20130516
  Receipt Date: 20130710
  Transmission Date: 20140515
  Serious: Yes (Hospitalization, Other)
  Sender: FDA-Public Use
  Company Number: IT-BRISTOL-MYERS SQUIBB COMPANY-18879320

PATIENT
  Age: 75 Year
  Sex: Female

DRUGS (15)
  1. COUMADIN TABS 5 MG [Suspect]
     Indication: ATRIAL FIBRILLATION
     Dosage: 1DF: 1DOSE?INTERRUPTED ON 04MAY2013,01JUL2013
     Route: 048
     Dates: start: 19980101
  2. FLUIBRON [Interacting]
     Indication: COUGH
     Dosage: 15MG/2ML SOLUTION FOR NEBULIZATION?1DF: 1DOSE, INTERRUPTED ON 04MAY2013
     Route: 055
     Dates: start: 20130501
  3. LEVOFLOXACIN [Interacting]
     Route: 048
     Dates: start: 20130501, end: 20130504
  4. CLENIL [Concomitant]
     Dates: start: 20130501
  5. BRONCOVALEAS [Concomitant]
     Dates: start: 20130501
  6. LASIX [Concomitant]
     Dosage: 1DF: 2DOSE?25MG TAB
     Route: 048
  7. LASITONE [Concomitant]
  8. SIVASTIN [Concomitant]
  9. EZETROL [Concomitant]
  10. IDEOS [Concomitant]
     Dosage: 4 TUBES CHEWABLE TABLETS 500 MG/400 IU
  11. ENAPREN [Concomitant]
     Dosage: 1DF: 2DOSE?TAB 5MG
     Route: 048
  12. MODURETIC [Concomitant]
  13. PARACODINA [Concomitant]
  14. ZYLORIC [Concomitant]
  15. LISOMUCIL [Concomitant]

REACTIONS (3)
  - Hypocoagulable state [Recovered/Resolved]
  - Drug interaction [Unknown]
  - Haematoma [Recovering/Resolving]
